FAERS Safety Report 5696981-9 (Version None)
Quarter: 2008Q2

REPORT INFORMATION
  Report Type: 
  Country: None (occurrence: None)
  Receive Date: 20080408
  Receipt Date: 20070227
  Transmission Date: 20081010
  Serious: No
  Sender: FDA-Public Use
  Company Number: US-BAYER-US-2007-007080

PATIENT
  Age: 21 Year
  Sex: Female
  Weight: 152 kg

DRUGS (2)
  1. YASMIN [Suspect]
     Indication: ORAL CONTRACEPTION
     Route: 048
     Dates: start: 20060601, end: 20061001
  2. YASMIN [Suspect]
     Route: 048
     Dates: start: 20070101

REACTIONS (3)
  - AFFECT LABILITY [None]
  - CRYING [None]
  - MOOD ALTERED [None]
